FAERS Safety Report 17152576 (Version 1)
Quarter: 2019Q4

REPORT INFORMATION
  Report Type: Spontaneous
  Country: US (occurrence: US)
  Receive Date: 20191213
  Receipt Date: 20191213
  Transmission Date: 20200122
  Serious: No
  Sender: FDA-Public Use
  Company Number: US-NOVOPROD-658316

PATIENT
  Sex: Male

DRUGS (1)
  1. LEVEMIR [Suspect]
     Active Substance: INSULIN DETEMIR
     Indication: PRODUCT USED FOR UNKNOWN INDICATION
     Dosage: TAKES TWO SHOTS PER DAY AND ROTATES INJECTION SITES
     Route: 058

REACTIONS (2)
  - Injection site mass [Not Recovered/Not Resolved]
  - Mass [Not Recovered/Not Resolved]
